FAERS Safety Report 7499894-5 (Version None)
Quarter: 2011Q2

REPORT INFORMATION
  Report Type: 
  Country: None (occurrence: None)
  Receive Date: 20110517
  Receipt Date: 20110510
  Transmission Date: 20111010
  Serious: Yes (Other)
  Sender: FDA-Public Use
  Company Number: 2011SP013096

PATIENT
  Age: 27 Year
  Sex: Female
  Weight: 49 kg

DRUGS (1)
  1. NUVARING [Suspect]
     Indication: CONTRACEPTION
     Dosage: ; QM; VAG
     Route: 067
     Dates: start: 20050101

REACTIONS (6)
  - URINARY TRACT INFECTION [None]
  - PETIT MAL EPILEPSY [None]
  - DRUG DOSE OMISSION [None]
  - ANGER [None]
  - AFFECT LABILITY [None]
  - INTENTIONAL SELF-INJURY [None]
